FAERS Safety Report 12383509 (Version 1)
Quarter: 2016Q2

REPORT INFORMATION
  Report Type: Spontaneous
  Country: US (occurrence: US)
  Receive Date: 20160518
  Receipt Date: 20160518
  Transmission Date: 20160815
  Serious: Yes (Life-Threatening, Hospitalization)
  Sender: FDA-Public Use
  Company Number: US-MYLANLABS-2016M1020375

PATIENT

DRUGS (1)
  1. BUPROPION. [Suspect]
     Active Substance: BUPROPION
     Indication: PRODUCT USED FOR UNKNOWN INDICATION
     Dosage: GREATER THAN 50, AND PERHAPS AS MANY AS 90, BUPROPION 150MG
     Route: 048

REACTIONS (7)
  - Acute kidney injury [Recovering/Resolving]
  - Overdose [Recovering/Resolving]
  - Pulseless electrical activity [Recovering/Resolving]
  - Hypoxia [Recovering/Resolving]
  - Toxicity to various agents [Unknown]
  - Status epilepticus [Recovered/Resolved]
  - Pulmonary oedema [Unknown]
